FAERS Safety Report 25481715 (Version 1)
Quarter: 2025Q2

REPORT INFORMATION
  Report Type: Report from Study
  Country: FR (occurrence: FR)
  Receive Date: 20250626
  Receipt Date: 20250626
  Transmission Date: 20250716
  Serious: No
  Sender: SANDOZ
  Company Number: FR-SANDOZ-SDZ2025FR030494

PATIENT
  Age: 7 Year
  Sex: Male

DRUGS (2)
  1. OMNITROPE [Suspect]
     Active Substance: SOMATROPIN
     Dosage: 0.6MG PER DAY 7/7D
     Route: 058
     Dates: start: 20250424
  2. OMNITROPE [Suspect]
     Active Substance: SOMATROPIN
     Indication: Product used for unknown indication
     Dosage: 0.6MG PER DAY 7/7D
     Route: 058
     Dates: start: 20250423

REACTIONS (2)
  - Injection site haematoma [Unknown]
  - Device use error [Unknown]

NARRATIVE: CASE EVENT DATE: 20250618
